FAERS Safety Report 5434617-2 (Version None)
Quarter: 2007Q3

REPORT INFORMATION
  Report Type: 
  Country: None (occurrence: None)
  Receive Date: 20070828
  Receipt Date: 20070828
  Transmission Date: 20080115
  Serious: Yes (Hospitalization)
  Sender: FDA-Public Use
  Company Number: None

PATIENT
  Sex: Male
  Weight: 80.9 kg

DRUGS (15)
  1. INTRON A [Suspect]
     Dosage: 48 MU
     Dates: start: 20070606, end: 20070626
  2. ACIPHOX [Concomitant]
  3. ADVAIR DISKUS 100/50 [Concomitant]
  4. ALBUTUROL SULFATE [Concomitant]
  5. ALLOPURINOL [Concomitant]
  6. ASPIRIN [Concomitant]
  7. AVAPRO [Concomitant]
  8. GLIPIZIDE [Concomitant]
  9. IPRATROPIUM BROMIDE [Concomitant]
  10. LISINOPRIL [Concomitant]
  11. METFORMIN HCL [Concomitant]
  12. QUETIAPINE FUMARATE [Concomitant]
  13. TERAZOSIN HCL [Concomitant]
  14. ZOCOR [Concomitant]
  15. ZOLOFT [Concomitant]

REACTIONS (1)
  - DRUG DOSE OMISSION [None]
